FAERS Safety Report 23366078 (Version 1)
Quarter: 2024Q1

REPORT INFORMATION
  Report Type: Report from Study
  Country: US (occurrence: None)
  Receive Date: 20240104
  Receipt Date: 20240104
  Transmission Date: 20240410
  Serious: Yes (Other)
  Sender: FDA-Public Use
  Company Number: 2023A295159

PATIENT
  Sex: Male

DRUGS (1)
  1. FARXIGA [Suspect]
     Active Substance: DAPAGLIFLOZIN PROPANEDIOL
     Dosage: UNKNOWN
     Route: 048

REACTIONS (5)
  - Dementia [Unknown]
  - Personality change [Unknown]
  - Type 2 diabetes mellitus [Unknown]
  - Renal disorder [Unknown]
  - Urinary tract infection [Unknown]
